FAERS Safety Report 22614957 (Version 1)
Quarter: 2023Q2

REPORT INFORMATION
  Report Type: Spontaneous
  Country: GB (occurrence: GB)
  Receive Date: 20230619
  Receipt Date: 20230619
  Transmission Date: 20230722
  Serious: Yes (Hospitalization, Other)
  Sender: FDA-Public Use
  Company Number: None

PATIENT
  Age: 83 Year
  Sex: Male

DRUGS (11)
  1. FLUOROURACIL [Suspect]
     Active Substance: FLUOROURACIL
     Indication: Product used for unknown indication
  2. APIXABAN [Concomitant]
     Active Substance: APIXABAN
     Dosage: 56 PACK
     Dates: start: 20220831
  3. CARBON DIOXIDE [Concomitant]
     Active Substance: CARBON DIOXIDE
     Dates: end: 20230607
  4. OXYGEN [Concomitant]
     Active Substance: OXYGEN
     Dates: end: 20230607
  5. CODEINE [Concomitant]
     Active Substance: CODEINE
     Dosage: THREE OR FOUR TIMES
     Dates: start: 20221116
  6. NITRIC OXIDE [Concomitant]
     Active Substance: NITRIC OXIDE
  7. NITROUS OXIDE [Concomitant]
     Active Substance: NITROUS OXIDE
  8. PANTOPRAZOLE [Concomitant]
     Active Substance: PANTOPRAZOLE
     Dosage: MORNING
  9. POLYETHYLENE GLYCOL 3350\POTASSIUM CHLORIDE\SODIUM BICARBONATE\SODIUM [Concomitant]
     Active Substance: POLYETHYLENE GLYCOL 3350\POTASSIUM CHLORIDE\SODIUM BICARBONATE\SODIUM CHLORIDE
  10. ALFUZOSIN HYDROCHLORIDE [Concomitant]
     Active Substance: ALFUZOSIN HYDROCHLORIDE
     Dates: start: 20221019
  11. DIETARY SUPPLEMENT [Concomitant]
     Active Substance: DIETARY SUPPLEMENT
     Dosage: AS DIRECTED 60X/60X/30X
     Dates: start: 20220907

REACTIONS (1)
  - Intestinal perforation [Recovering/Resolving]
